FAERS Safety Report 19194247 (Version 1)
Quarter: 2021Q2

REPORT INFORMATION
  Report Type: Spontaneous
  Country: DE (occurrence: DE)
  Receive Date: 20210429
  Receipt Date: 20210429
  Transmission Date: 20210717
  Serious: Yes (Hospitalization)
  Sender: FDA-Public Use
  Company Number: DE-STRIDES ARCOLAB LIMITED-2021SP004917

PATIENT
  Age: 62 Year
  Sex: Female
  Weight: 65 kg

DRUGS (15)
  1. L?THYROXINE [LEVOTHYROXINE SODIUM] [Interacting]
     Active Substance: LEVOTHYROXINE SODIUM
     Indication: PARKINSON^S DISEASE
     Dosage: 100 MICROGRAM PER DAY
     Route: 065
  2. ESCITALOPRAM [Concomitant]
     Active Substance: ESCITALOPRAM OXALATE
     Indication: ANTIDEPRESSANT THERAPY
     Dosage: 10 MILLIGRAM (TITRATED) PER DAY
     Route: 065
  3. AGOMELATINE [Interacting]
     Active Substance: AGOMELATINE
     Indication: PARKINSON^S DISEASE
     Dosage: 50 MILLIGRAML PER DAY
     Route: 065
  4. PRAMIPEXOLE DIHYDROCHLORIDE. [Interacting]
     Active Substance: PRAMIPEXOLE DIHYDROCHLORIDE
     Dosage: UNK, REDUCED AND DISCONTINUED
     Route: 065
  5. RANOLAZINE. [Interacting]
     Active Substance: RANOLAZINE
     Indication: HYPERTENSION
     Dosage: 375 MILLIGRAM PER DAY
     Route: 065
  6. MOCLOBEMIDE [Interacting]
     Active Substance: MOCLOBEMIDE
     Indication: PARKINSON^S DISEASE
     Dosage: 150 MILLIGRAM PER DAY (INCREASED TO CURRENT DOSE)
     Route: 065
  7. RASAGILINE. [Interacting]
     Active Substance: RASAGILINE
     Indication: PARKINSON^S DISEASE
     Dosage: 1 MILLIGRAM PER DAY
     Route: 065
  8. L?DOPA+BENSERAZIDE [Interacting]
     Active Substance: BENSERAZIDE\LEVODOPA
     Indication: PARKINSON^S DISEASE
     Dosage: 200+50 MG PER DAY
     Route: 065
  9. TRIMIPRAMINE [Concomitant]
     Active Substance: TRIMIPRAMINE
     Indication: SLEEP DISORDER
     Dosage: 10 MILLIGRAM, AT BED TIME
     Route: 065
  10. PRAMIPEXOLE DIHYDROCHLORIDE. [Suspect]
     Active Substance: PRAMIPEXOLE DIHYDROCHLORIDE
     Indication: PARKINSON^S DISEASE
     Dosage: 0.525 MILLIGRAM PER DAY
     Route: 065
  11. MOCLOBEMIDE [Interacting]
     Active Substance: MOCLOBEMIDE
     Dosage: 450 MILLIGRAM PER DAY
     Route: 065
  12. MIRTAZAPINE. [Concomitant]
     Active Substance: MIRTAZAPINE
     Indication: INSOMNIA
     Dosage: UNK
     Route: 065
  13. TRAZODONE [Suspect]
     Active Substance: TRAZODONE HYDROCHLORIDE
     Indication: INSOMNIA
     Dosage: UNK
     Route: 065
  14. L?DOPA+BENSERAZIDE [Interacting]
     Active Substance: BENSERAZIDE\LEVODOPA
     Dosage: 125 MILLIGRAM, TID (THREE TIMES A DAY)
     Route: 065
  15. ROTIGOTINE [Concomitant]
     Active Substance: ROTIGOTINE
     Indication: PARKINSON^S DISEASE
     Dosage: 8 MILLIGRAM PER DAY
     Route: 062

REACTIONS (2)
  - Drug interaction [Unknown]
  - Drug ineffective [Unknown]
